FAERS Safety Report 8038645-2 (Version None)
Quarter: 2012Q1

REPORT INFORMATION
  Report Type: 
  Country: None (occurrence: None)
  Receive Date: 20120111
  Receipt Date: 20111202
  Transmission Date: 20120608
  Serious: No
  Sender: FDA-Public Use
  Company Number: US-AMGEN-USASP2011046946

PATIENT
  Age: 67 Year
  Sex: Female
  Weight: 72.29 kg

DRUGS (11)
  1. TYLENOL W/ CODEINE [Concomitant]
     Dosage: ONE TAB 2 TO 3 TIMES PER DAY
  2. CARAFATE [Concomitant]
     Dosage: 1 GM/10ML
  3. PLAQUENIL [Concomitant]
     Dosage: 200 MG, BID
  4. EFFEXOR [Concomitant]
     Dosage: 75 MG CAPSULE EXTENDED RELEASE 24-HOUR 2 CAPS EVERY MORNING
  5. FOLIC ACID [Concomitant]
     Dosage: UNK UNK, QD
  6. MULTIVITAMIN                       /00097801/ [Concomitant]
     Dosage: AS DIRECTED
  7. CIMZIA [Concomitant]
  8. ENBREL [Suspect]
     Indication: RHEUMATOID ARTHRITIS
     Dosage: 50 MG, QWK
     Route: 058
     Dates: start: 20060701
  9. METHOTREXATE [Concomitant]
     Indication: RHEUMATOID ARTHRITIS
     Dosage: 25 MG, QWK
     Route: 058
  10. PREVACID [Concomitant]
     Dosage: 30 MG, CAPSULE DELAYED RELEASE ONE CAP BID
  11. MIGERGOT [Concomitant]
     Dosage: 200 MG, UNK

REACTIONS (13)
  - JOINT STIFFNESS [None]
  - FATIGUE [None]
  - ARTHRALGIA [None]
  - OEDEMA PERIPHERAL [None]
  - INJECTION SITE REACTION [None]
  - SYNOVITIS [None]
  - INJECTION SITE SWELLING [None]
  - TENDON PAIN [None]
  - MUSCULOSKELETAL STIFFNESS [None]
  - JOINT SWELLING [None]
  - PRURITUS [None]
  - INJECTION SITE ERYTHEMA [None]
  - ESCHERICHIA URINARY TRACT INFECTION [None]
